FAERS Safety Report 25958845 (Version 2)
Quarter: 2025Q4

REPORT INFORMATION
  Report Type: Report from Study
  Country: US (occurrence: US)
  Receive Date: 20251025
  Receipt Date: 20251104
  Transmission Date: 20260118
  Serious: Yes (Other)
  Sender: ABBVIE
  Company Number: US-ABBVIE-6512827

PATIENT
  Age: 54 Year
  Sex: Female
  Weight: 75.296 kg

DRUGS (3)
  1. RINVOQ [Suspect]
     Active Substance: UPADACITINIB
     Indication: Ankylosing spondylitis
     Dosage: FORM STRENGTH: 15 MILLIGRAM
     Route: 048
     Dates: start: 20240326
  2. PREDNISONE [Concomitant]
     Active Substance: PREDNISONE
     Indication: Ankylosing spondylitis
     Dosage: AS NEEDED
  3. INDOMETHACIN [Concomitant]
     Active Substance: INDOMETHACIN
     Indication: Ankylosing spondylitis

REACTIONS (3)
  - Meniscus injury [Recovered/Resolved]
  - Joint lock [Unknown]
  - Arthritis [Unknown]

NARRATIVE: CASE EVENT DATE: 20240420
